FAERS Safety Report 13069246 (Version 2)
Quarter: 2017Q1

REPORT INFORMATION
  Report Type: Spontaneous
  Country: US (occurrence: US)
  Receive Date: 20161228
  Receipt Date: 20170105
  Transmission Date: 20170428
  Serious: No
  Sender: FDA-Public Use
  Company Number: US-G+W LABS-GW2016US000221

PATIENT

DRUGS (2)
  1. HALOBETASOL PROPIONATE. [Suspect]
     Active Substance: HALOBETASOL PROPIONATE
     Dosage: 0.05 %, BID FOR ONE WEEK THEN REST FOR A FEW DAYS AND RESTART
     Route: 061
  2. HALOBETASOL PROPIONATE. [Suspect]
     Active Substance: HALOBETASOL PROPIONATE
     Indication: PSORIASIS
     Dosage: 0.05 %, BID FOR ONE WEEK THEN REST FOR A FEW DAYS AND RESTART
     Route: 061

REACTIONS (2)
  - Product use issue [Not Recovered/Not Resolved]
  - Drug ineffective for unapproved indication [Not Recovered/Not Resolved]
